FAERS Safety Report 5715562-1 (Version None)
Quarter: 2008Q2

REPORT INFORMATION
  Report Type: 
  Country: None (occurrence: None)
  Receive Date: 20080424
  Receipt Date: 20080414
  Transmission Date: 20081010
  Serious: Yes (Death, Life-Threatening, Hospitalization, Disabling)
  Sender: FDA-Public Use
  Company Number: GB-RANBAXY-2008RR-14515

PATIENT

DRUGS (30)
  1. DOXYCYCLIN BASICS 100 MG [Suspect]
     Route: 048
  2. ACOMPLIA [Suspect]
     Indication: WEIGHT DECREASED
     Dosage: 20 MG, QD
     Route: 048
  3. ERYTHROMYCIN TABLETS BP 250MG [Suspect]
     Indication: LOWER RESPIRATORY TRACT INFECTION
  4. ALLOPURINOL [Concomitant]
     Indication: GOUT
     Dosage: 300 MG, QD
     Route: 048
     Dates: start: 20070604
  5. AMOXICILLIN [Concomitant]
     Dosage: 500 MG, TID
     Route: 048
  6. ASPIRIN [Concomitant]
     Dosage: 75 MG, QD
     Route: 048
     Dates: start: 20070601
  7. ATORVASTATIN CALCIUM [Concomitant]
     Indication: BLOOD CHOLESTEROL
     Dosage: 40 MG, QD
     Route: 048
     Dates: start: 20070601
  8. BUDESONIDE [Concomitant]
     Dosage: 100 UG, QID
     Route: 055
     Dates: start: 20070706
  9. CHLORHEXIDINE GLUCONATE [Concomitant]
     Dosage: 0.2 %, BID
     Route: 048
  10. CIALIS [Concomitant]
     Dosage: 20 MG, PRN
     Route: 048
     Dates: start: 20070601
  11. DAKTACORT [Concomitant]
     Indication: DRY SKIN
     Dosage: 1 DF, TID
     Route: 061
  12. DIPROBASE [Concomitant]
     Indication: DRY SKIN
     Dosage: 1 DF, TID
     Route: 061
  13. DOUBLEBASE L [Concomitant]
     Indication: DRY SKIN
     Dosage: UNK
     Route: 061
     Dates: start: 20070821
  14. DOXYCYCLINE [Concomitant]
     Dosage: 100 MG, QD
     Route: 048
  15. ERYTHROMYCIN [Concomitant]
     Indication: INFECTION
     Dosage: 250 MG, QID
     Route: 048
  16. FORMOTEROL [Concomitant]
     Dosage: 6 UG, QID
     Route: 055
     Dates: start: 20070706
  17. FORMOTEROL FUMARATE [Concomitant]
     Dosage: 6 UG, BID
     Route: 055
     Dates: start: 20070817
  18. FUROSEMIDE [Concomitant]
     Dosage: 40 MG, BID
     Route: 048
     Dates: start: 20070601
  19. GLIPIZIDE [Concomitant]
     Dosage: 5 MG, BID
     Route: 048
     Dates: start: 20070601
  20. HYDROCHLOROTHYAZIDE [Concomitant]
     Dosage: 12.5 MG, QD
     Route: 048
     Dates: start: 20070601
  21. LANSOPRAZOLE [Concomitant]
     Indication: DYSPEPSIA
     Dosage: 30 MG, QD
     Route: 048
     Dates: start: 20070604
  22. LISINOPRIL [Concomitant]
     Dosage: 20 MG, QD
     Route: 048
     Dates: start: 20070601
  23. METFORMIN HCL [Concomitant]
     Dosage: 500 MG, BID
     Route: 048
     Dates: start: 20070601
  24. MICONAZOLE [Concomitant]
     Dosage: 24 MG, QID
  25. PREDNISOLONE [Concomitant]
     Dosage: 5 MG, QID
     Route: 048
  26. RAMIPRIL [Concomitant]
     Indication: BLOOD PRESSURE
     Dosage: 2.5 MG, QD
     Route: 048
  27. ROSIGLITAZONE [Concomitant]
     Dosage: 2 MG, BID
     Route: 048
     Dates: start: 20070601
  28. SALAMOL [Concomitant]
     Dosage: 100 UG, QID
     Route: 055
     Dates: start: 20070626
  29. TIOTROPIUM  BROMIDE [Concomitant]
     Dosage: 18 UG, QD
     Route: 055
     Dates: start: 20070601
  30. INSULIN [Concomitant]
     Indication: TYPE 2 DIABETES MELLITUS

REACTIONS (17)
  - ANAEMIA [None]
  - BLOOD CULTURE POSITIVE [None]
  - BRONCHOPULMONARY ASPERGILLOSIS [None]
  - CONFUSIONAL STATE [None]
  - DIARRHOEA [None]
  - DRUG INTERACTION [None]
  - DYSPNOEA [None]
  - ENTEROBACTER INFECTION [None]
  - EOSINOPHILIA [None]
  - HYPOTENSION [None]
  - PNEUMONIA FUNGAL [None]
  - PROTEUS INFECTION [None]
  - PYREXIA [None]
  - RENAL FAILURE ACUTE [None]
  - STEVENS-JOHNSON SYNDROME [None]
  - THROMBOCYTOPENIA [None]
  - TOXIC SHOCK SYNDROME [None]
